FAERS Safety Report 4310151-8 (Version None)
Quarter: 2004Q1

REPORT INFORMATION
  Report Type: 
  Country: None (occurrence: None)
  Receive Date: 20040301
  Receipt Date: 20040122
  Transmission Date: 20041129
  Serious: No
  Sender: FDA-Public Use
  Company Number: WAES 0401USA01668

PATIENT
  Age: 62 Year
  Sex: Female

DRUGS (7)
  1. ZETIA [Suspect]
     Dosage: 10 MG/DAILY/ PO
     Route: 048
     Dates: start: 20030101, end: 20031201
  2. ZETIA [Suspect]
     Dosage: 10 MG/DAILY/ PO
     Route: 048
     Dates: start: 20040119, end: 20040121
  3. EVISTA [Concomitant]
  4. NIASPAN [Concomitant]
  5. PROTONIX [Concomitant]
  6. TOPROL-XL [Concomitant]
  7. ASPIRIN [Concomitant]

REACTIONS (1)
  - HAEMOPTYSIS [None]
